FAERS Safety Report 24390835 (Version 1)
Quarter: 2024Q4

REPORT INFORMATION
  Report Type: Spontaneous
  Country: US (occurrence: US)
  Receive Date: 20241003
  Receipt Date: 20241003
  Transmission Date: 20250114
  Serious: No
  Sender: BAXTER
  Company Number: US-BAXTER-2024BAX024866

PATIENT

DRUGS (1)
  1. TISSEEL FROZEN [Suspect]
     Active Substance: FIBRINOGEN HUMAN\THROMBIN HUMAN
     Dosage: 4 ML
     Route: 065
     Dates: start: 20240913, end: 20240913

REACTIONS (2)
  - Scar [Unknown]
  - Inflammation [Unknown]

NARRATIVE: CASE EVENT DATE: 20240913
